FAERS Safety Report 10989149 (Version 1)
Quarter: 2015Q2

REPORT INFORMATION
  Report Type: Spontaneous
  Country: TR (occurrence: TR)
  Receive Date: 20150406
  Receipt Date: 20150406
  Transmission Date: 20150821
  Serious: Yes (Other)
  Sender: FDA-Public Use
  Company Number: TR-CIPLA LTD.-2015IR02594

PATIENT

DRUGS (7)
  1. CAPEGARD [Suspect]
     Active Substance: CAPECITABINE
     Dosage: 2500 MG/M2, (DAYS 1-14 OF 21) PER CYCLE FOR FIVE CYCLES
     Dates: start: 200401, end: 200406
  2. LEUCOVORIN [Suspect]
     Active Substance: LEUCOVORIN
     Indication: RECTAL CANCER STAGE II
     Dosage: 200 MG/M2 FOR 4 CYCLES
     Route: 040
  3. 5-FLUOROURACIL [Suspect]
     Active Substance: FLUOROURACIL
     Indication: RECTAL CANCER STAGE II
     Dosage: 400 MG/M2 FOR 4 CYCLES
     Route: 040
  4. 5-FLUOROURACIL [Suspect]
     Active Substance: FLUOROURACIL
     Dosage: 600 MG/M2 WITH CONTINUOUS IV INFUSION FOR 22 H (DAYS 1, 2 AND 15, 16 OF 28) PER CYCLE FOR 4 CYCLES
  5. RALTITREXED [Suspect]
     Active Substance: RALTITREXED
     Indication: RECTAL CANCER STAGE II
     Dosage: 3 MG/M2, (DAY 1 OF 21)
  6. OXALIPLATIN. [Suspect]
     Active Substance: OXALIPLATIN
     Indication: METASTASES TO LIVER
     Dosage: 130 MG/M2 (DAY 1 OF 21) PER CYCLE FOR FIVE CYCLES
     Dates: start: 200401, end: 200406
  7. IRINOTECAN [Suspect]
     Active Substance: IRINOTECAN
     Indication: RECTAL CANCER STAGE II
     Dosage: 180 MG/M2, (DAYS 1 AND 15 OF 28) PER CYCLE FOR 4 CYCLES

REACTIONS (2)
  - Metastases to liver [Unknown]
  - Chronic myeloid leukaemia [Unknown]

NARRATIVE: CASE EVENT DATE: 200401
